FAERS Safety Report 15826983 (Version 2)
Quarter: 2019Q1

REPORT INFORMATION
  Report Type: Spontaneous
  Country: FR (occurrence: FR)
  Receive Date: 20190115
  Receipt Date: 20190204
  Transmission Date: 20190417
  Serious: No
  Sender: FDA-Public Use
  Company Number: FR-ALLERGAN-1901690US

PATIENT
  Age: 78 Year
  Sex: Male

DRUGS (6)
  1. BRIMONIDINE [Suspect]
     Active Substance: BRIMONIDINE TARTRATE
     Indication: OPEN ANGLE GLAUCOMA
     Dosage: UNK UNK, BID
     Route: 047
  2. LATANOPROST. [Suspect]
     Active Substance: LATANOPROST
     Indication: OPEN ANGLE GLAUCOMA
     Dosage: UNK, QD
     Route: 047
  3. PILOCARPINE. [Suspect]
     Active Substance: PILOCARPINE
     Indication: OPEN ANGLE GLAUCOMA
     Dosage: UNK, BID
     Route: 047
  4. DORZOLAMIDE W/TIMOLOL [Suspect]
     Active Substance: DORZOLAMIDE HYDROCHLORIDE\TIMOLOL MALEATE
     Indication: OPEN ANGLE GLAUCOMA
     Dosage: UNK, BID
     Route: 047
  5. DEXAMETHASONE W/NEOMYCIN [Suspect]
     Active Substance: DEXAMETHASONE\NEOMYCIN
     Indication: OPEN ANGLE GLAUCOMA
     Dosage: UNK, BID
     Route: 047
  6. ACETAZOLAMIDE. [Suspect]
     Active Substance: ACETAZOLAMIDE
     Indication: OPEN ANGLE GLAUCOMA
     Dosage: 125 MG, TID
     Route: 048

REACTIONS (5)
  - Intraocular pressure increased [Recovering/Resolving]
  - Blepharitis [Recovering/Resolving]
  - Corneal oedema [None]
  - Ocular hyperaemia [Recovering/Resolving]
  - Condition aggravated [None]
